FAERS Safety Report 6032584-4 (Version None)
Quarter: 2009Q1

REPORT INFORMATION
  Report Type: 
  Country: None (occurrence: None)
  Receive Date: 20090109
  Receipt Date: 20081231
  Transmission Date: 20090719
  Serious: Yes (Other)
  Sender: FDA-Public Use
  Company Number: US-BAYER-200814979BCC

PATIENT
  Age: 46 Year
  Sex: Female
  Weight: 65 kg

DRUGS (3)
  1. ALKA SELTZER PLUS DAY LIQUID GELS (FORMULATION NOT SPECIFIED) [Suspect]
     Indication: NASOPHARYNGITIS
     Dosage: TOTAL DAILY DOSE: 1 DF  UNIT DOSE: 1 DF
     Dates: start: 20081215
  2. ALKA SELTZER PLUS NIGHT LIQUID GELS (FORMULATION NOT SPECIFIED) [Suspect]
     Indication: NASOPHARYNGITIS
     Dosage: TOTAL DAILY DOSE: 1 DF  UNIT DOSE: 1 DF
     Dates: start: 20081215
  3. DOCUSATE SODIUM [Concomitant]

REACTIONS (1)
  - CONVULSION [None]
